FAERS Safety Report 11116353 (Version 2)
Quarter: 2015Q3

REPORT INFORMATION
  Report Type: Spontaneous
  Country: IT (occurrence: IT)
  Receive Date: 20150515
  Receipt Date: 20150702
  Transmission Date: 20151125
  Serious: Yes (Other)
  Sender: FDA-Public Use
  Company Number: IT-ELI_LILLY_AND_COMPANY-IT201505000679

PATIENT
  Age: 61 Year
  Sex: Female

DRUGS (9)
  1. PLASIL                             /00041901/ [Concomitant]
     Active Substance: METOCLOPRAMIDE
     Dosage: 1 DF, PRN
  2. EUTIROX [Concomitant]
     Active Substance: LEVOTHYROXINE SODIUM
  3. DEXAMETHASONE. [Concomitant]
     Active Substance: DEXAMETHASONE
     Dosage: 4 MG, PRN
  4. CARBOPLATIN. [Concomitant]
     Active Substance: CARBOPLATIN
     Dosage: 604 MG, UNKNOWN
     Route: 042
     Dates: start: 20140905, end: 20140905
  5. FOLINGRAV [Concomitant]
     Dosage: 1 DF, QD
  6. ALIMTA [Suspect]
     Active Substance: PEMETREXED DISODIUM
     Indication: LUNG ADENOCARCINOMA STAGE IV
     Dosage: 860.7 MG, CYCLICAL
     Route: 042
     Dates: start: 20140905, end: 20140905
  7. PANTOPRAZOLE [Concomitant]
     Active Substance: PANTOPRAZOLE SODIUM
     Dosage: 20 MG, QD
  8. DOBETIN                            /00056201/ [Concomitant]
     Active Substance: CYANOCOBALAMIN
     Dosage: 1000 UG, EVERY NINE WEEKS
     Route: 030
  9. DELTACORTENE [Concomitant]
     Active Substance: PREDNISONE
     Dosage: 25 MG, BID

REACTIONS (5)
  - Vomiting [Recovering/Resolving]
  - Dysphagia [Recovering/Resolving]
  - Nausea [Recovering/Resolving]
  - Thrombocytopenia [Recovering/Resolving]
  - Off label use [Unknown]

NARRATIVE: CASE EVENT DATE: 20140905
